FAERS Safety Report 21903464 (Version 1)
Quarter: 2023Q1

REPORT INFORMATION
  Report Type: Spontaneous
  Country: CH (occurrence: None)
  Receive Date: 20230124
  Receipt Date: 20230124
  Transmission Date: 20230417
  Serious: Yes (Hospitalization, Other)
  Sender: FDA-Public Use
  Company Number: CH-ROCHE-3249504

PATIENT
  Age: 58 Year
  Sex: Female
  Weight: 60 kg

DRUGS (21)
  1. MABTHERA [Suspect]
     Active Substance: RITUXIMAB
     Indication: Rheumatoid arthritis
     Route: 042
     Dates: start: 200807
  2. MABTHERA [Suspect]
     Active Substance: RITUXIMAB
     Indication: Sjogren^s syndrome
     Dosage: 2ND CYCLE
     Route: 042
     Dates: start: 20220701
  3. MABTHERA [Suspect]
     Active Substance: RITUXIMAB
     Indication: Autoimmune haemolytic anaemia
  4. ACTEMRA [Suspect]
     Active Substance: TOCILIZUMAB
     Indication: Sjogren^s syndrome
     Route: 065
  5. ACTEMRA [Suspect]
     Active Substance: TOCILIZUMAB
     Indication: Rheumatoid arthritis
  6. ACTEMRA [Suspect]
     Active Substance: TOCILIZUMAB
     Indication: Autoimmune haemolytic anaemia
  7. METHOTREXATE [Concomitant]
     Active Substance: METHOTREXATE
  8. ORENCIA [Concomitant]
     Active Substance: ABATACEPT
  9. HUMIRA [Concomitant]
     Active Substance: ADALIMUMAB
  10. LEFLUNOMIDE [Concomitant]
     Active Substance: LEFLUNOMIDE
  11. XELJANZ [Concomitant]
     Active Substance: TOFACITINIB CITRATE
  12. ENBREL [Concomitant]
     Active Substance: ETANERCEPT
  13. OLUMIANT [Concomitant]
     Active Substance: BARICITINIB
  14. RINVOQ [Concomitant]
     Active Substance: UPADACITINIB
  15. SOLU-MEDROL [Concomitant]
     Active Substance: METHYLPREDNISOLONE SODIUM SUCCINATE
     Route: 042
  16. PREDNISONE [Concomitant]
     Active Substance: PREDNISONE
  17. PREDNISONE [Concomitant]
     Active Substance: PREDNISONE
     Route: 048
     Dates: start: 20220712, end: 20220719
  18. CLEMASTINE FUMARATE [Concomitant]
     Active Substance: CLEMASTINE FUMARATE
     Route: 042
  19. ACETAMINOPHEN [Concomitant]
     Active Substance: ACETAMINOPHEN
     Route: 048
  20. PLAQUENIL [Concomitant]
     Active Substance: HYDROXYCHLOROQUINE SULFATE
     Route: 048
  21. VALACYCLOVIR HYDROCHLORIDE [Concomitant]
     Active Substance: VALACYCLOVIR HYDROCHLORIDE

REACTIONS (15)
  - Musculoskeletal pain [Recovered/Resolved]
  - Bicytopenia [Unknown]
  - General physical health deterioration [Recovered/Resolved]
  - Chills [Unknown]
  - Hypersensitivity [Unknown]
  - Therapeutic product effect incomplete [Unknown]
  - Petechiae [Recovered/Resolved]
  - Thrombocytopenia [Recovered/Resolved]
  - Leukopenia [Recovered/Resolved]
  - Drug intolerance [Unknown]
  - Diarrhoea [Unknown]
  - Pain in jaw [Unknown]
  - Oropharyngeal pain [Unknown]
  - Inflammatory marker increased [Unknown]
  - Herpes simplex [Unknown]

NARRATIVE: CASE EVENT DATE: 20080701
